FAERS Safety Report 4408278-5 (Version None)
Quarter: 2004Q3

REPORT INFORMATION
  Report Type: 
  Country: None (occurrence: None)
  Receive Date: 20040722
  Receipt Date: 20040706
  Transmission Date: 20050211
  Serious: Yes (Hospitalization)
  Sender: FDA-Public Use
  Company Number: B0338655A

PATIENT
  Age: 51 Year
  Sex: Male

DRUGS (2)
  1. VALTREX [Suspect]
     Indication: HERPES ZOSTER
     Dosage: 3 GRAM (S)/ PER DAY/ ORAL
     Route: 048
  2. ACYCLOVIR [Concomitant]

REACTIONS (4)
  - DIFFICULTY IN WALKING [None]
  - DRUG INEFFECTIVE [None]
  - MOTOR DYSFUNCTION [None]
  - RADICULITIS [None]
